FAERS Safety Report 19971809 (Version 1)
Quarter: 2021Q4

REPORT INFORMATION
  Report Type: Spontaneous
  Country: US (occurrence: US)
  Receive Date: 20211019
  Receipt Date: 20211019
  Transmission Date: 20220303
  Serious: No
  Sender: FDA-Public Use
  Company Number: US-MYLANLABS-2021M1073189

PATIENT
  Sex: Female
  Weight: 45 kg

DRUGS (1)
  1. ETHINYL ESTRADIOL\LEVONORGESTREL [Suspect]
     Active Substance: ETHINYL ESTRADIOL\LEVONORGESTREL
     Indication: Contraception
     Dosage: 1 DOSAGE FORM, QD (1 TABLET PER DAY)
     Route: 048
     Dates: start: 20211010

REACTIONS (3)
  - Menstrual disorder [Not Recovered/Not Resolved]
  - Product storage error [Not Recovered/Not Resolved]
  - Poor quality product administered [Not Recovered/Not Resolved]
